FAERS Safety Report 9813187 (Version 3)
Quarter: 2014Q1

REPORT INFORMATION
  Report Type: Spontaneous
  Country: US (occurrence: US)
  Receive Date: 20140113
  Receipt Date: 20140131
  Transmission Date: 20141002
  Serious: Yes (Other)
  Sender: FDA-Public Use
  Company Number: US-PFIZER INC-2014005221

PATIENT
  Age: 60 Year
  Sex: Male

DRUGS (2)
  1. VIAGRA [Suspect]
     Indication: SEXUAL DYSFUNCTION
     Dosage: 100 MG, AS NEEDED
  2. CLONIDINE [Concomitant]
     Indication: BLOOD PRESSURE ABNORMAL
     Dosage: UNK

REACTIONS (1)
  - Prostatic disorder [Unknown]
